FAERS Safety Report 5345337-7 (Version None)
Quarter: 2007Q2

REPORT INFORMATION
  Report Type: 
  Country: None (occurrence: None)
  Receive Date: 20070601
  Receipt Date: 20070520
  Transmission Date: 20071010
  Serious: Yes (Hospitalization)
  Sender: FDA-Public Use
  Company Number: 156625USA

PATIENT
  Age: 54 Year
  Sex: Female

DRUGS (2)
  1. METHYLPREDNISOLONE ACETATE 80MG/ML SUSPENSION [Suspect]
     Indication: MULTIPLE SCLEROSIS
     Dosage: FOR 3 DAYS EVERY 2 MONTHS (1000 MG), INTRAVENOUS
     Route: 042
  2. LEVOTHYROXINE SODIUM [Concomitant]

REACTIONS (3)
  - CONDITION AGGRAVATED [None]
  - HEPATIC NECROSIS [None]
  - NEUROLOGICAL SYMPTOM [None]
